FAERS Safety Report 10079958 (Version 1)
Quarter: 2014Q2

REPORT INFORMATION
  Report Type: Report from Study
  Country: US (occurrence: US)
  Receive Date: 20140415
  Receipt Date: 20140415
  Transmission Date: 20141212
  Serious: No
  Sender: FDA-Public Use
  Company Number: US-ASTRAZENECA-2014SE21519

PATIENT
  Age: 51 Year
  Sex: Female
  Weight: 90.7 kg

DRUGS (6)
  1. NEXIUM [Suspect]
     Indication: GASTROOESOPHAGEAL REFLUX DISEASE
     Route: 048
  2. OMEPRAZOLE OTC [Suspect]
     Indication: GASTROOESOPHAGEAL REFLUX DISEASE
     Dosage: 20 MG, TWO TABLETS ONCE DAILY
     Route: 048
     Dates: start: 201402
  3. RHINOCORT AQUA [Suspect]
     Indication: DRUG HYPERSENSITIVITY
     Dosage: 32 MCG, 1 SPRAY IN EACH NOSTRIL DAILY
     Route: 045
  4. LISINOPRIL HCTZ [Suspect]
     Indication: BLOOD PRESSURE ABNORMAL
     Dosage: 20+25 MG EVERY DAY BEFORE NOON
     Route: 048
  5. CITALOPRAM [Concomitant]
     Indication: DEPRESSION
     Route: 048
  6. PRIVASTATIN [Concomitant]
     Indication: BLOOD CHOLESTEROL ABNORMAL
     Route: 048

REACTIONS (5)
  - Gastrooesophageal reflux disease [Unknown]
  - Increased upper airway secretion [Unknown]
  - Sputum discoloured [Unknown]
  - Drug dose omission [Unknown]
  - Drug ineffective [Unknown]
